FAERS Safety Report 24725966 (Version 1)
Quarter: 2024Q4

REPORT INFORMATION
  Report Type: Spontaneous
  Country: US (occurrence: US)
  Receive Date: 20241212
  Receipt Date: 20241212
  Transmission Date: 20250114
  Serious: Yes (Other)
  Sender: DR REDDYS
  Company Number: US-DRL-USA-SPO/USA/24/0018276

PATIENT
  Age: 26 Year
  Sex: Female

DRUGS (1)
  1. ACCUTANE [Suspect]
     Active Substance: ISOTRETINOIN
     Indication: Product used for unknown indication
     Route: 065
     Dates: start: 20240201, end: 20241104

REACTIONS (3)
  - Surgery [Unknown]
  - Therapy cessation [Unknown]
  - Product use issue [Unknown]

NARRATIVE: CASE EVENT DATE: 20241104
